FAERS Safety Report 5174656-2 (Version None)
Quarter: 2006Q4

REPORT INFORMATION
  Report Type: 
  Country: None (occurrence: None)
  Receive Date: 20061214
  Receipt Date: 20060614
  Transmission Date: 20070319
  Serious: No
  Sender: FDA-Public Use
  Company Number: US-AMGEN-KDL183034

PATIENT
  Sex: Female

DRUGS (3)
  1. ENBREL [Suspect]
     Indication: RHEUMATOID ARTHRITIS
     Route: 058
     Dates: start: 20060608
  2. METHOTREXATE [Concomitant]
     Dates: start: 20040101
  3. PLACQUENIL [Concomitant]
     Dates: start: 20040101

REACTIONS (8)
  - AMNESIA [None]
  - CONTUSION [None]
  - DIZZINESS [None]
  - INCREASED TENDENCY TO BRUISE [None]
  - INJECTION SITE BRUISING [None]
  - INJECTION SITE REACTION [None]
  - PYREXIA [None]
  - SYNCOPE [None]
